FAERS Safety Report 11361952 (Version 1)
Quarter: 2015Q3

REPORT INFORMATION
  Report Type: Spontaneous
  Country: TW (occurrence: TW)
  Receive Date: 20150810
  Receipt Date: 20150810
  Transmission Date: 20151125
  Serious: Yes (Other)
  Sender: FDA-Public Use
  Company Number: TW-FRESENIUS KABI-FK201503776

PATIENT
  Age: 61 Year
  Sex: Male

DRUGS (1)
  1. CALCIUM GLUCONATE (MANUFACTURER UNKNOWN) [Suspect]
     Active Substance: CALCIUM GLUCONATE
     Indication: HYPOCALCAEMIA
     Route: 042

REACTIONS (1)
  - Deep vein thrombosis [Recovering/Resolving]
